FAERS Safety Report 6420252-6 (Version None)
Quarter: 2009Q4

REPORT INFORMATION
  Report Type: 
  Country: None (occurrence: None)
  Receive Date: 20091029
  Receipt Date: 20091023
  Transmission Date: 20100525
  Serious: Yes (Death)
  Sender: FDA-Public Use
  Company Number: PHHY2008JP27451

PATIENT
  Age: 60 Year
  Sex: Female
  Weight: 60 kg

DRUGS (7)
  1. EXJADE [Suspect]
     Indication: REFRACTORY ANAEMIA WITH AN EXCESS OF BLASTS
     Dosage: 1000MG/DAY
     Route: 048
     Dates: start: 20080724, end: 20081028
  2. EXJADE [Suspect]
     Indication: IRON OVERLOAD
  3. NEORAL [Concomitant]
     Dosage: 200 MG/DAY
     Dates: start: 20080818, end: 20081028
  4. PREDNISOLONE [Concomitant]
     Indication: PANNICULITIS
     Dosage: 30 MG/DAY
  5. PREDNISOLONE [Concomitant]
     Dosage: 1000 MG/DAY
  6. PREDNISOLONE [Concomitant]
     Dosage: 60 MG/DAY
  7. PREDNISOLONE [Concomitant]
     Dosage: 40 MG/DAY

REACTIONS (10)
  - ANAL ABSCESS [None]
  - ANORECTAL ULCER [None]
  - DEBRIDEMENT [None]
  - HERPES SIMPLEX [None]
  - MALIGNANT NEOPLASM PROGRESSION [None]
  - NECROSIS [None]
  - NECROTISING FASCIITIS [None]
  - PYREXIA [None]
  - SEPSIS [None]
  - SEPTIC SHOCK [None]
